FAERS Safety Report 19137275 (Version 1)
Quarter: 2021Q2

REPORT INFORMATION
  Report Type: Spontaneous
  Country: DE (occurrence: DE)
  Receive Date: 20210414
  Receipt Date: 20210414
  Transmission Date: 20210717
  Serious: Yes (Hospitalization, Other)
  Sender: FDA-Public Use
  Company Number: DE-TEVA-2021-DE-1899181

PATIENT
  Age: 6 Year
  Sex: Male
  Weight: 17 kg

DRUGS (3)
  1. CLOBAZAM. [Concomitant]
     Active Substance: CLOBAZAM
     Indication: EPILEPSY
     Dosage: 5?0?10 MG:UNIT DOSE:15MILLIGRAM
     Route: 048
     Dates: start: 20191030
  2. PRIMIDON [Suspect]
     Active Substance: PRIMIDONE
     Indication: EPILEPSY
     Dosage: 400 MILLIGRAM DAILY; DAILY DOSE: 400 MG  FORM EVERY DAYS 2 SEPARATED DOSES
     Route: 048
     Dates: start: 20191030
  3. PHENYTOIN. [Suspect]
     Active Substance: PHENYTOIN
     Indication: EPILEPSY
     Dosage: 50?0?75 MG
     Route: 048
     Dates: start: 20191028

REACTIONS (2)
  - Anticonvulsant drug level above therapeutic [Unknown]
  - Seizure [Unknown]

NARRATIVE: CASE EVENT DATE: 20191031
